FAERS Safety Report 7307631-X (Version None)
Quarter: 2011Q1

REPORT INFORMATION
  Report Type: 
  Country: None (occurrence: None)
  Receive Date: 20110223
  Receipt Date: 20110223
  Transmission Date: 20110831
  Serious: Yes (Other)
  Sender: FDA-Public Use
  Company Number: None

PATIENT
  Sex: Female
  Weight: 81.6475 kg

DRUGS (1)
  1. ALCOHOL SWABS ISOPROPYL ALCOHOL, 70%V/V TRIAD [Suspect]
     Indication: THERAPEUTIC SKIN CARE TOPICAL
     Dosage: ONE WIPE EVERY THREE DAYS TOP
     Route: 061
     Dates: start: 20101001, end: 20110201

REACTIONS (2)
  - APPLICATION SITE RASH [None]
  - PRODUCT QUALITY ISSUE [None]
